FAERS Safety Report 7510108-X (Version None)
Quarter: 2011Q2

REPORT INFORMATION
  Report Type: 
  Country: None (occurrence: None)
  Receive Date: 20110527
  Receipt Date: 20110522
  Transmission Date: 20111010
  Serious: Yes (Hospitalization, Other)
  Sender: FDA-Public Use
  Company Number: HU-PFIZER INC-2011110214

PATIENT
  Age: 84 Year
  Sex: Male
  Weight: 92 kg

DRUGS (4)
  1. CATAFLAM [Concomitant]
     Dosage: UNK
     Dates: start: 20010101
  2. LYRICA [Suspect]
     Indication: NEURALGIA
     Dosage: 150 MG, 1X/DAY
     Route: 048
     Dates: start: 20010101
  3. GINKOBIL [Concomitant]
     Dosage: UNK
     Dates: start: 20070101
  4. ACCUZIDE [Concomitant]
     Dosage: UNK
     Dates: start: 20010101

REACTIONS (4)
  - DIZZINESS [None]
  - HYPOAESTHESIA [None]
  - LOWER LIMB FRACTURE [None]
  - FALL [None]
